FAERS Safety Report 4301972-6 (Version None)
Quarter: 2004Q1

REPORT INFORMATION
  Report Type: 
  Country: None (occurrence: None)
  Receive Date: 20040220
  Receipt Date: 20040213
  Transmission Date: 20041129
  Serious: No
  Sender: FDA-Public Use
  Company Number: 2003GB03013

PATIENT
  Age: 59 Year
  Sex: Male
  Weight: 78.0187 kg

DRUGS (8)
  1. CRESTOR [Suspect]
     Dosage: 10 MG PO
     Route: 048
     Dates: start: 20031024, end: 20031104
  2. TEGRETOL [Concomitant]
  3. ISTIN [Concomitant]
  4. PHENYTOIN [Concomitant]
  5. TOPAMAX [Concomitant]
  6. BECLOMETHASONE DIPROPIONATE [Concomitant]
  7. SALMETEROL [Concomitant]
  8. SALBUTAMOL [Concomitant]

REACTIONS (3)
  - CONDITION AGGRAVATED [None]
  - DYSPNOEA [None]
  - PETIT MAL EPILEPSY [None]
